FAERS Safety Report 8003354-2 (Version None)
Quarter: 2011Q4

REPORT INFORMATION
  Report Type: 
  Country: None (occurrence: None)
  Receive Date: 20111222
  Receipt Date: 20111214
  Transmission Date: 20120403
  Serious: Yes (Other)
  Sender: FDA-Public Use
  Company Number: KR-B.I. PHARMACEUTICALS,INC./RIDGEFIELD-2011-BP-28527YA

PATIENT
  Age: 78 Year
  Sex: Male
  Weight: 72 kg

DRUGS (4)
  1. FAMOTIDINE [Concomitant]
     Dates: start: 20110812
  2. ARTEMISIA ASIATICA (HERBAL EXTRACT) [Concomitant]
     Dates: start: 20110812
  3. TAMSULOSIN HCL [Suspect]
     Indication: NEUROGENIC BLADDER
     Dosage: 0.2 MG
     Route: 048
     Dates: start: 20110829
  4. GASPYLORE [Concomitant]
     Dates: start: 20110812

REACTIONS (1)
  - GASTRIC CANCER [None]
